FAERS Safety Report 8837542 (Version 2)
Quarter: 2012Q4

REPORT INFORMATION
  Report Type: 
  Country: JP (occurrence: JP)
  Receive Date: 20121012
  Receipt Date: 20121121
  Transmission Date: 20130627
  Serious: Yes (Hospitalization)
  Sender: FDA-Public Use
  Company Number: JP-SANOFI-AVENTIS-2012SA073044

PATIENT
  Age: 62 Year
  Sex: Female
  Weight: 40 kg

DRUGS (18)
  1. LASIX [Suspect]
     Indication: CARDIAC FAILURE
     Route: 042
  2. WARFARIN SODIUM [Suspect]
     Indication: PROPHYLAXIS
     Route: 065
  3. WARFARIN SODIUM [Suspect]
     Indication: PROPHYLAXIS
     Dosage: dose reduced
     Route: 065
  4. CEFTRIAXONE [Concomitant]
     Indication: PNEUMONIA
  5. HEPARIN [Concomitant]
     Indication: THROMBOEMBOLISM PROPHYLAXIS
  6. HEPARIN [Concomitant]
     Indication: THROMBOEMBOLISM PROPHYLAXIS
  7. VERAPAMIL [Concomitant]
     Indication: SUSTAINED VENTRICULAR TACHYCARDIA
  8. PROPRANOLOL [Concomitant]
     Indication: TACHYCARDIA
  9. DOPAMINE [Concomitant]
     Indication: SHOCK
  10. DOBUTAMINE [Concomitant]
     Indication: SHOCK
  11. THIAMAZOLE [Concomitant]
     Indication: THYROID STORM
     Route: 048
  12. THIAMAZOLE [Concomitant]
     Indication: THYROID STORM
  13. THIAMAZOLE [Concomitant]
     Indication: THYROID STORM
  14. DEXTROSE [Concomitant]
     Indication: HYPOGLYCEMIA
     Route: 042
  15. HYDROCORTISONE [Concomitant]
     Route: 042
  16. HYDROCORTISONE [Concomitant]
  17. HYDROCORTISONE [Concomitant]
  18. GABEXATE MESILATE [Concomitant]

REACTIONS (4)
  - International normalised ratio increased [Recovering/Resolving]
  - Haemorrhagic infarction [Recovering/Resolving]
  - Dehydration [Unknown]
  - Renal failure acute [Recovering/Resolving]
